FAERS Safety Report 9384796 (Version 2)
Quarter: 2013Q3

REPORT INFORMATION
  Report Type: Report from Study
  Country: CA (occurrence: CA)
  Receive Date: 20130705
  Receipt Date: 20130715
  Transmission Date: 20140515
  Serious: Yes (Other)
  Sender: FDA-Public Use
  Company Number: CA-JNJFOC-20130702259

PATIENT
  Sex: Male
  Weight: 95.5 kg

DRUGS (1)
  1. REMICADE [Suspect]
     Indication: COLITIS ULCERATIVE
     Dosage: HAD 09 INFUSIONS UNTIL TIME OF REPORT
     Route: 042
     Dates: end: 20130627

REACTIONS (1)
  - Lung neoplasm malignant [Not Recovered/Not Resolved]
